FAERS Safety Report 9386893 (Version 1)
Quarter: 2013Q3

REPORT INFORMATION
  Report Type: Spontaneous
  Country: GB (occurrence: None)
  Receive Date: 20130702
  Receipt Date: 20130702
  Transmission Date: 20140515
  Serious: Yes (Hospitalization, Other)
  Sender: FDA-Public Use
  Company Number: AUR-APL-2013-05229

PATIENT
  Age: 72 Year
  Sex: Male

DRUGS (18)
  1. METFORMIN (METFORMIN) [Suspect]
     Indication: TYPE 1 DIABETES MELLITUS
     Route: 048
     Dates: start: 20010215, end: 20130420
  2. ASPIRIN (ACETYLSALICYCLIC ACID) [Concomitant]
  3. ATENOLOL (ATENOLOL) [Concomitant]
  4. CLARITHROMYCIN (CLARITHROMYCIN) [Concomitant]
  5. CORACTEN XL (NIFEDIPINE) [Concomitant]
  6. EXENATIDE (EXENATIDE) [Concomitant]
  7. FLUCLOXACILLIN (FLUCLOXACILLIN) [Concomitant]
  8. INDAPAMIDE (INDAPAMIDE) [Concomitant]
  9. LEVOTHYROXINE (LEVOTHYROXINE) [Concomitant]
  10. LOPERAMIDE (LOPERAMIDE) [Concomitant]
  11. LOSARTAN (LOSARTAN) [Concomitant]
  12. METHYLDOPA (METHYLDOPA) [Concomitant]
  13. OMEPRAZOLE (OMEPRAZOLE) [Concomitant]
  14. PREDNISOLONE (PREDNISOLONE) [Concomitant]
  15. QUININE BISULPHATE (QUININE BISULFATE) [Concomitant]
  16. SALBUTAMOL (SALBUTAMOL) [Concomitant]
  17. SIMVASTATIN (SIMVASTATIN) [Concomitant]
  18. SOLIFENACIN [Concomitant]

REACTIONS (3)
  - Renal failure acute [None]
  - Vomiting [None]
  - Diarrhoea [None]
